FAERS Safety Report 13340299 (Version 1)
Quarter: 2017Q1

REPORT INFORMATION
  Report Type: Spontaneous
  Country: GB (occurrence: GB)
  Receive Date: 20170316
  Receipt Date: 20170316
  Transmission Date: 20170428
  Serious: Yes (Other)
  Sender: FDA-Public Use
  Company Number: GB-AMGEN-GBRSP2017039747

PATIENT
  Age: 79 Year
  Sex: Male

DRUGS (2)
  1. ENBREL [Suspect]
     Active Substance: ETANERCEPT
     Indication: PRODUCT USED FOR UNKNOWN INDICATION
     Dosage: 50 MG, WEEKLY
     Route: 058
  2. INSULIN [Concomitant]
     Active Substance: INSULIN NOS
     Dosage: UNK

REACTIONS (2)
  - Wrist fracture [Unknown]
  - Fall [Unknown]

NARRATIVE: CASE EVENT DATE: 20170226
